FAERS Safety Report 6200064-9 (Version None)
Quarter: 2009Q2

REPORT INFORMATION
  Report Type: 
  Country: None (occurrence: None)
  Receive Date: 20090522
  Receipt Date: 20070629
  Transmission Date: 20091009
  Serious: No
  Sender: FDA-Public Use
  Company Number: US-ALEXION-A200700020

PATIENT
  Sex: Female

DRUGS (4)
  1. SOLIRIS [Suspect]
     Indication: PAROXYSMAL NOCTURNAL HAEMOGLOBINURIA
     Dosage: 600 MG, SINGLE
     Route: 042
     Dates: start: 20070628, end: 20070628
  2. SYNTHROID [Concomitant]
     Indication: HYPOTHYROIDISM
     Route: 048
  3. LOPRESSOR [Concomitant]
     Indication: HYPERTENSION
     Route: 048
  4. MIDRIN                             /00450801/ [Concomitant]
     Indication: MIGRAINE
     Route: 048

REACTIONS (2)
  - HEADACHE [None]
  - NASAL CONGESTION [None]
